FAERS Safety Report 24304991 (Version 1)
Quarter: 2024Q3

REPORT INFORMATION
  Report Type: Report from Study
  Country: US (occurrence: None)
  Receive Date: 20240911
  Receipt Date: 20240911
  Transmission Date: 20241017
  Serious: Yes (Other)
  Sender: ASTRAZENECA
  Company Number: 2024A203455

PATIENT
  Sex: Female

DRUGS (20)
  1. FASENRA [Suspect]
     Active Substance: BENRALIZUMAB
     Indication: Chronic obstructive pulmonary disease
     Dosage: 30MG/ML EVERY EIGHT WEEKS
     Route: 058
  2. METOPROLOL TARTRATE [Suspect]
     Active Substance: METOPROLOL TARTRATE
     Route: 048
  3. ROSUVASTATIN [Suspect]
     Active Substance: ROSUVASTATIN\ROSUVASTATIN CALCIUM
     Route: 048
  4. SEROQUEL [Suspect]
     Active Substance: QUETIAPINE FUMARATE
     Route: 048
  5. METOPROLOL [Concomitant]
     Active Substance: METOPROLOL
  6. ALBUTEROL [Concomitant]
     Active Substance: ALBUTEROL
     Dosage: 108
  7. BREO ELLIPTA [Concomitant]
     Active Substance: FLUTICASONE FUROATE\VILANTEROL TRIFENATATE
     Dosage: 100-25 MC
  8. BUPROPION HC POW [Concomitant]
  9. BUSPIRONE HC POW [Concomitant]
  10. DIVALPROEX S POW [Concomitant]
  11. LEVOCETIRIZI POW [Concomitant]
  12. LEVOTHYROXIN POW [Concomitant]
  13. PRIMIDONE POW [Concomitant]
  14. PROPRANOLOL POW [Concomitant]
  15. REXULTI [Concomitant]
     Active Substance: BREXPIPRAZOLE
  16. ROSUVASTATIN [Concomitant]
     Active Substance: ROSUVASTATIN\ROSUVASTATIN CALCIUM
  17. SEROQUEL [Concomitant]
     Active Substance: QUETIAPINE FUMARATE
  18. SPIRIVA HAND [Concomitant]
  19. TRAZODONE HC POW [Concomitant]
  20. TRINTELLIX [Concomitant]
     Active Substance: VORTIOXETINE HYDROBROMIDE

REACTIONS (4)
  - Musculoskeletal pain [Not Recovered/Not Resolved]
  - Fatigue [Not Recovered/Not Resolved]
  - Asthma [Not Recovered/Not Resolved]
  - Drug ineffective [Unknown]
